FAERS Safety Report 5844357-3 (Version None)
Quarter: 2008Q3

REPORT INFORMATION
  Report Type: 
  Country: None (occurrence: None)
  Receive Date: 20080731
  Receipt Date: 20080527
  Transmission Date: 20090109
  Serious: No
  Sender: FDA-Public Use
  Company Number: US200710007284

PATIENT
  Age: 67 Year
  Sex: Female
  Weight: 135.6 kg

DRUGS (15)
  1. BYETTA [Suspect]
     Indication: OBESITY
     Dosage: 5 UG, 2/D, SUBCUTANEOUS; 10 UG, 2/D, SUBCUTANEOUS
     Route: 058
     Dates: start: 20070914, end: 20071101
  2. BYETTA [Suspect]
     Indication: WEIGHT CONTROL
     Dosage: 5 UG, 2/D, SUBCUTANEOUS; 10 UG, 2/D, SUBCUTANEOUS
     Route: 058
     Dates: start: 20070914, end: 20071101
  3. BYETTA [Suspect]
     Indication: OBESITY
     Dosage: 5 UG, 2/D, SUBCUTANEOUS; 10 UG, 2/D, SUBCUTANEOUS
     Route: 058
     Dates: start: 20071101, end: 20071201
  4. BYETTA [Suspect]
     Indication: WEIGHT CONTROL
     Dosage: 5 UG, 2/D, SUBCUTANEOUS; 10 UG, 2/D, SUBCUTANEOUS
     Route: 058
     Dates: start: 20071101, end: 20071201
  5. BYETTA [Suspect]
     Indication: OBESITY
     Dosage: 5 UG, 2/D, SUBCUTANEOUS; 10 UG, 2/D, SUBCUTANEOUS
     Route: 058
     Dates: start: 20071201
  6. BYETTA [Suspect]
     Indication: WEIGHT CONTROL
     Dosage: 5 UG, 2/D, SUBCUTANEOUS; 10 UG, 2/D, SUBCUTANEOUS
     Route: 058
     Dates: start: 20071201
  7. BYETTA [Suspect]
  8. METFORMIN HCL [Concomitant]
  9. DRUG USED IN DIABETES [Concomitant]
  10. GLYBURIDE [Concomitant]
  11. SIMVASTATIN [Concomitant]
  12. PRAVASTATIN [Concomitant]
  13. METOPROLOL TARTRATE [Concomitant]
  14. FUROSEMIDE (FUROSEMIDE) [Concomitant]
  15. EXENATIDE PEN, DISPOSABLE DEVICE (EXENATIDE PEN)) PEN,DISPOSABLE [Concomitant]

REACTIONS (6)
  - GAIT DISTURBANCE [None]
  - MONARTHRITIS [None]
  - MUSCLE ATROPHY [None]
  - MYALGIA [None]
  - NAUSEA [None]
  - WEIGHT DECREASED [None]
